FAERS Safety Report 22022847 (Version 1)
Quarter: 2023Q1

REPORT INFORMATION
  Report Type: Spontaneous
  Country: US (occurrence: US)
  Receive Date: 20230222
  Receipt Date: 20230222
  Transmission Date: 20230418
  Serious: Yes (Hospitalization, Other)
  Sender: FDA-Public Use
  Company Number: US-ORGANON-O2302USA002069

PATIENT
  Sex: Female

DRUGS (7)
  1. MAXALT [Suspect]
     Active Substance: RIZATRIPTAN BENZOATE
     Indication: Migraine
     Dosage: 3 DOSAGE FORM, QD (3 PILLS PER DAY)
     Route: 048
     Dates: start: 2001
  2. RIZATRIPTAN BENZOATE [Suspect]
     Active Substance: RIZATRIPTAN BENZOATE
     Indication: Migraine
     Dosage: UNK
     Route: 048
  3. AIMOVIG [Concomitant]
     Active Substance: ERENUMAB-AOOE
     Dosage: UNK
  4. ROSUVASTATIN [Concomitant]
     Active Substance: ROSUVASTATIN
     Dosage: UNK
  5. LISINOPRIL [Concomitant]
     Active Substance: LISINOPRIL
     Dosage: UNK
  6. BACLOFEN [Concomitant]
     Active Substance: BACLOFEN
     Dosage: UNK
  7. SYNTHROID [Concomitant]
     Active Substance: LEVOTHYROXINE SODIUM
     Dosage: UNK

REACTIONS (10)
  - Brain operation [Unknown]
  - Insomnia [Not Recovered/Not Resolved]
  - Neurological infection [Not Recovered/Not Resolved]
  - Brain operation [Unknown]
  - Post procedural complication [Not Recovered/Not Resolved]
  - Cardiac murmur [Not Recovered/Not Resolved]
  - Nerve injury [Not Recovered/Not Resolved]
  - Herpes zoster [Unknown]
  - Onychomadesis [Unknown]
  - Spinal operation [Unknown]

NARRATIVE: CASE EVENT DATE: 20220101
